FAERS Safety Report 6260616-7 (Version None)
Quarter: 2009Q3

REPORT INFORMATION
  Report Type: 
  Country: None (occurrence: None)
  Receive Date: 20090708
  Receipt Date: 20090701
  Transmission Date: 20100115
  Serious: Yes (Hospitalization, Other)
  Sender: FDA-Public Use
  Company Number: ES-ROXANE LABORATORIES, INC.-2009-RO-00643RO

PATIENT
  Age: 63 Year

DRUGS (10)
  1. FLUTICASONE [Suspect]
     Indication: ASTHMA
     Dosage: 400 MCG
     Route: 055
  2. TIOTROPIUM BROMIDE [Suspect]
     Indication: ASTHMA
  3. MONTELUKAST [Suspect]
     Indication: ASTHMA
  4. DEFLAZACORT [Suspect]
     Indication: ASTHMA
     Dosage: 6 MG
     Route: 048
  5. HYDROCORTISONE [Concomitant]
     Indication: ADRENAL INSUFFICIENCY
     Dosage: 300 MG
  6. AMPHOTERICIN B [Concomitant]
     Indication: VISCERAL LEISHMANIASIS
  7. AMPHOTERICIN B [Concomitant]
  8. AMOXICILLIN [Concomitant]
     Indication: TOOTH ABSCESS
  9. CLAVULANATE POTASSIUM [Concomitant]
     Indication: TOOTH ABSCESS
  10. ORAL ANTIDIABETICS [Concomitant]
     Indication: TYPE 2 DIABETES MELLITUS
     Route: 048

REACTIONS (9)
  - ADRENAL INSUFFICIENCY [None]
  - COAGULOPATHY [None]
  - DEHYDRATION [None]
  - HISTIOCYTOSIS HAEMATOPHAGIC [None]
  - HYPOXIA [None]
  - RESPIRATORY ALKALOSIS [None]
  - SEPTIC SHOCK [None]
  - TOOTH ABSCESS [None]
  - VISCERAL LEISHMANIASIS [None]
